FAERS Safety Report 10203467 (Version 1)
Quarter: 2014Q2

REPORT INFORMATION
  Report Type: Spontaneous
  Country: CA (occurrence: None)
  Receive Date: 20140523
  Receipt Date: 20140523
  Transmission Date: 20141212
  Serious: Yes (Other)
  Sender: FDA-Public Use
  Company Number: 2014000150

PATIENT
  Age: 40 Year
  Sex: Male
  Weight: 128 kg

DRUGS (5)
  1. ACEON (PERINDOPRIL ERBUMINE) TABLET [Suspect]
     Indication: PRODUCT USED FOR UNKNOWN INDICATION
  2. REMICADE [Suspect]
     Indication: PRODUCT USED FOR UNKNOWN INDICATION
     Dosage: EVERY 6 WEEKS
     Route: 042
  3. NAPROXEN [Concomitant]
  4. NEXIUM (ESOMEPRAZOLE MAGNESIUM) [Concomitant]
  5. PRED FORTE (PREDNISOLONE ACETATE) [Concomitant]

REACTIONS (6)
  - Road traffic accident [None]
  - Urticaria [None]
  - Contusion [None]
  - Rib fracture [None]
  - Dizziness [None]
  - Arthralgia [None]
